FAERS Safety Report 10467872 (Version 1)
Quarter: 2014Q3

REPORT INFORMATION
  Report Type: Spontaneous
  Country: US (occurrence: US)
  Receive Date: 20140922
  Receipt Date: 20140922
  Transmission Date: 20150326
  Serious: Yes (Other)
  Sender: FDA-Public Use
  Company Number: PHHY2014US118500

PATIENT
  Age: 69 Year
  Sex: Male

DRUGS (5)
  1. ZOLEDRONATE [Suspect]
     Active Substance: ZOLEDRONIC ACID
     Indication: METASTASES TO BONE
     Dosage: 4 MG, QMO
  2. LEUPRORELIN [Suspect]
     Active Substance: LEUPROLIDE ACETATE
     Indication: METASTASES TO BONE
  3. THALIDOMIDE [Suspect]
     Active Substance: THALIDOMIDE
     Indication: METASTASES TO BONE
     Dosage: 100 MG, PER DAY
  4. THALIDOMIDE [Suspect]
     Active Substance: THALIDOMIDE
     Dosage: 200 MG, PER DAY
  5. DEXAMETHASONE. [Suspect]
     Active Substance: DEXAMETHASONE
     Indication: METASTASES TO BONE
     Dosage: 4-8 MG, PER DAY

REACTIONS (10)
  - Anxiety [Unknown]
  - Malignant neoplasm progression [Unknown]
  - Blood alkaline phosphatase increased [Unknown]
  - Haemoglobin decreased [Unknown]
  - Oedema [Recovering/Resolving]
  - Neuropathy peripheral [Unknown]
  - White blood cell count decreased [Unknown]
  - Metastases to bone [Unknown]
  - Bone lesion [Unknown]
  - Drug ineffective [Unknown]
